FAERS Safety Report 9976945 (Version 1)
Quarter: 2014Q1

REPORT INFORMATION
  Report Type: Report from Study
  Country: US (occurrence: US)
  Receive Date: 20140306
  Receipt Date: 20140306
  Transmission Date: 20141002
  Serious: No
  Sender: FDA-Public Use
  Company Number: US-ABBVIE-13P-163-1166395-00

PATIENT
  Age: 56 Year
  Sex: Male

DRUGS (4)
  1. HUMIRA [Suspect]
     Indication: ANKYLOSING SPONDYLITIS
     Dates: start: 2009
  2. HUMIRA [Suspect]
     Indication: COLITIS ULCERATIVE
  3. HYDROCODONE [Concomitant]
     Indication: PAIN
  4. METHOTREXATE [Concomitant]
     Indication: PRODUCT USED FOR UNKNOWN INDICATION
     Dates: start: 2012

REACTIONS (4)
  - Incorrect dose administered [Unknown]
  - Colitis ulcerative [Recovering/Resolving]
  - Hypertension [Unknown]
  - Injection site haemorrhage [Unknown]
